FAERS Safety Report 8908697 (Version 1)
Quarter: 2012Q4

REPORT INFORMATION
  Report Type: 
  Country: US (occurrence: US)
  Receive Date: 20121113
  Receipt Date: 20121113
  Transmission Date: 20130627
  Serious: No
  Sender: FDA-Public Use
  Company Number: US-AMGEN-USASP2012010025

PATIENT
  Age: 60 Year
  Sex: Female

DRUGS (2)
  1. ENBREL [Suspect]
     Indication: RHEUMATOID ARTHRITIS
     Dosage: 50 mg, qwk
     Dates: start: 201108
  2. ENBREL [Suspect]
     Dosage: 50 mg, qwk
     Dates: start: 20110701, end: 20120307

REACTIONS (4)
  - Vomiting [Recovered/Resolved]
  - Viral infection [Unknown]
  - Bronchitis [Not Recovered/Not Resolved]
  - Sinusitis [Recovered/Resolved]
